FAERS Safety Report 6474464-6 (Version None)
Quarter: 2009Q4

REPORT INFORMATION
  Report Type: 
  Country: None (occurrence: None)
  Receive Date: 20091123
  Receipt Date: 20090831
  Transmission Date: 20100525
  Serious: No
  Sender: FDA-Public Use
  Company Number: 8051304

PATIENT
  Age: 62 Year
  Sex: Female
  Weight: 90.9 kg

DRUGS (8)
  1. CIMZIA [Suspect]
     Indication: CROHN'S DISEASE
     Dosage: 400 MG
     Dates: start: 20090818, end: 20090818
  2. ENTOCORT EC [Concomitant]
  3. PENTASA [Concomitant]
  4. METOPROLOL [Concomitant]
  5. LISINOPRIL [Concomitant]
  6. POTASSIUM [Concomitant]
  7. PREVACID [Concomitant]
  8. GABAPENTIN [Concomitant]

REACTIONS (3)
  - INFLUENZA LIKE ILLNESS [None]
  - SINUSITIS [None]
  - URTICARIA [None]
